FAERS Safety Report 8008788-8 (Version None)
Quarter: 2011Q4

REPORT INFORMATION
  Report Type: 
  Country: None (occurrence: None)
  Receive Date: 20111227
  Receipt Date: 20111212
  Transmission Date: 20120403
  Serious: Yes (Other)
  Sender: FDA-Public Use
  Company Number: KE-WATSON-2011-22064

PATIENT
  Age: 36 Year
  Sex: Female

DRUGS (4)
  1. TACROLIMUS [Suspect]
     Indication: LIVER TRANSPLANT
     Dosage: UNK
  2. PREDNISOLONE [Suspect]
     Indication: LIVER TRANSPLANT
     Dosage: UNK
  3. CYCLOSPORINE [Suspect]
     Indication: LIVER TRANSPLANT
     Dosage: UNK
  4. LEVOTHYROXINE SODIUM [Suspect]
     Indication: THYROID HORMONE REPLACEMENT THERAPY
     Dosage: UNK

REACTIONS (3)
  - OLIGOHYDRAMNIOS [None]
  - MATERNAL EXPOSURE DURING PREGNANCY [None]
  - CAESAREAN SECTION [None]
